FAERS Safety Report 4892504-2 (Version None)
Quarter: 2006Q1

REPORT INFORMATION
  Report Type: 
  Country: None (occurrence: None)
  Receive Date: 20060125
  Receipt Date: 20060125
  Transmission Date: 20060701
  Serious: Yes (Life-Threatening, Hospitalization)
  Sender: FDA-Public Use
  Company Number: None

PATIENT
  Sex: Female
  Weight: 86.5 kg

DRUGS (6)
  1. HUMALOG [Suspect]
     Indication: DIABETES MELLITUS INSULIN-DEPENDENT
     Dosage: 10U QD SQ
     Route: 058
  2. ASPIRIN [Concomitant]
  3. ATENOLOL [Concomitant]
  4. DILTIAZEM HCL [Concomitant]
  5. ISOSORBIDE DINITRATE [Concomitant]
  6. SEIZURE MEDS (NOT SPECIFIC) [Concomitant]

REACTIONS (7)
  - BLOOD GLUCOSE FLUCTUATION [None]
  - DECREASED APPETITE [None]
  - DEPRESSED LEVEL OF CONSCIOUSNESS [None]
  - HYPERHIDROSIS [None]
  - INADEQUATE DIET [None]
  - MENTAL STATUS CHANGES [None]
  - VISION BLURRED [None]
